FAERS Safety Report 14448373 (Version 1)
Quarter: 2018Q1

REPORT INFORMATION
  Report Type: Spontaneous
  Country: US (occurrence: US)
  Receive Date: 20180126
  Receipt Date: 20180126
  Transmission Date: 20180509
  Serious: Yes (Hospitalization)
  Sender: FDA-Public Use
  Company Number: None

PATIENT
  Age: 55 Year
  Sex: Female

DRUGS (10)
  1. METOPROLOL TARTRATE. [Concomitant]
     Active Substance: METOPROLOL TARTRATE
  2. BUMETANIDE. [Concomitant]
     Active Substance: BUMETANIDE
  3. POT CHLORIDE [Concomitant]
     Active Substance: POTASSIUM CHLORIDE
  4. GLIPIZIDE. [Concomitant]
     Active Substance: GLIPIZIDE
  5. REMODULIN [Concomitant]
     Active Substance: TREPROSTINIL
  6. OPSUMIT [Concomitant]
     Active Substance: MACITENTAN
  7. LEVOTHYROXINE. [Concomitant]
     Active Substance: LEVOTHYROXINE
  8. ADCIRCA [Suspect]
     Active Substance: TADALAFIL
     Indication: PULMONARY ARTERIAL HYPERTENSION
     Route: 048
     Dates: start: 20140313
  9. SPIRONOLACT [Concomitant]
     Active Substance: SPIRONOLACTONE
  10. FLUOXETINE [Concomitant]
     Active Substance: FLUOXETINE HYDROCHLORIDE

REACTIONS (1)
  - Pleural effusion [None]

NARRATIVE: CASE EVENT DATE: 20171228
